FAERS Safety Report 14753680 (Version 1)
Quarter: 2018Q2

REPORT INFORMATION
  Report Type: Spontaneous
  Country: US (occurrence: US)
  Receive Date: 20180412
  Receipt Date: 20180412
  Transmission Date: 20180711
  Serious: Yes (Other)
  Sender: FDA-Public Use
  Company Number: US-PFIZER INC-2018141810

PATIENT
  Age: 45 Year
  Sex: Female
  Weight: 106.59 kg

DRUGS (2)
  1. CHAPSTICK CLASSIC ORIGINAL [Suspect]
     Active Substance: PETROLATUM
     Dosage: 1 APPLICATION TO HER LIPS AS NEEDED RANDOMLY
     Dates: start: 20180404, end: 20180404
  2. CHAPSTICK CLASSIC ORIGINAL [Suspect]
     Active Substance: PETROLATUM
     Indication: LIP DRY
     Dosage: 1 APPLICATION TO HER LIPS AS NEEDED RANDOMLY
     Dates: start: 201803

REACTIONS (4)
  - Lip swelling [Unknown]
  - Pruritus [Unknown]
  - Lip erythema [Unknown]
  - Chapped lips [Unknown]

NARRATIVE: CASE EVENT DATE: 201803
